FAERS Safety Report 9802798 (Version 1)
Quarter: 2014Q1

REPORT INFORMATION
  Report Type: Spontaneous
  Country: US (occurrence: None)
  Receive Date: 20140103
  Receipt Date: 20140103
  Transmission Date: 20141002
  Serious: Yes (Hospitalization, Other)
  Sender: FDA-Public Use
  Company Number: None

PATIENT
  Age: 43 Year
  Sex: Male
  Weight: 81.65 kg

DRUGS (3)
  1. CIPRO 500MG [Suspect]
     Indication: PROSTATITIS
     Dosage: 2
     Route: 048
  2. ERYTHROMYCIN [Suspect]
     Indication: PROSTATITIS
     Dates: start: 20131010, end: 20131016
  3. ERYTHROMYCIN [Concomitant]

REACTIONS (8)
  - Aptyalism [None]
  - Nasal dryness [None]
  - Nasal discomfort [None]
  - Musculoskeletal stiffness [None]
  - Anxiety [None]
  - Urinary tract infection [None]
  - Hypoaesthesia [None]
  - Paraesthesia [None]
